FAERS Safety Report 17903449 (Version 3)
Quarter: 2020Q3

REPORT INFORMATION
  Report Type: Other
  Country: ES (occurrence: ES)
  Receive Date: 20200617
  Receipt Date: 20200819
  Transmission Date: 20201103
  Serious: Yes (Other)
  Sender: FDA-Public Use
  Company Number: ES-ROCHE-2619849

PATIENT
  Sex: Female

DRUGS (2)
  1. HERCEPTIN [Suspect]
     Active Substance: TRASTUZUMAB
     Indication: HER2 POSITIVE BREAST CANCER
     Route: 065
  2. PERJETA [Suspect]
     Active Substance: PERTUZUMAB
     Indication: HER2 POSITIVE BREAST CANCER
     Route: 065

REACTIONS (16)
  - Diarrhoea [Unknown]
  - Polyuria [Unknown]
  - Headache [Unknown]
  - Fatigue [Unknown]
  - Alopecia [Unknown]
  - Somnolence [Unknown]
  - Ageusia [Unknown]
  - Myalgia [Unknown]
  - Pneumonia [Unknown]
  - Memory impairment [Unknown]
  - Sensory loss [Unknown]
  - Taste disorder [Unknown]
  - Nausea [Unknown]
  - Paraesthesia [Unknown]
  - Anxiety [Unknown]
  - Metastases to lung [Unknown]
